FAERS Safety Report 18877186 (Version 1)
Quarter: 2021Q1

REPORT INFORMATION
  Report Type: Report from Study
  Country: US (occurrence: US)
  Receive Date: 20210211
  Receipt Date: 20210211
  Transmission Date: 20210420
  Serious: Yes (Hospitalization, Other)
  Sender: FDA-Public Use
  Company Number: NVSC2021US025454

PATIENT
  Sex: Male

DRUGS (3)
  1. NEORAL [Suspect]
     Active Substance: CYCLOSPORINE
     Dosage: 50 MG, BID
     Route: 048
  2. NEORAL [Suspect]
     Active Substance: CYCLOSPORINE
     Indication: TRANSPLANT
     Dosage: 75 MG, BID (75 IN THE MORNING AND 75 AT NIGHT)
     Route: 048
  3. NEORAL [Suspect]
     Active Substance: CYCLOSPORINE
     Dosage: 25 MG, BID
     Route: 048

REACTIONS (2)
  - Internal haemorrhage [Unknown]
  - Renal failure [Unknown]
